FAERS Safety Report 21785944 (Version 1)
Quarter: 2022Q4

REPORT INFORMATION
  Report Type: Spontaneous
  Country: CZ (occurrence: CZ)
  Receive Date: 20221228
  Receipt Date: 20221228
  Transmission Date: 20230113
  Serious: Yes (Other)
  Sender: FDA-Public Use
  Company Number: CZ-CELLTRION INC.-2022CZ019056

PATIENT

DRUGS (7)
  1. INFLIXIMAB [Suspect]
     Active Substance: INFLIXIMAB
     Indication: Colitis ulcerative
     Dosage: 5MG/KG (THAT IS 0-2-6-10 WEEK)
     Route: 042
     Dates: start: 20220623
  2. INFLIXIMAB [Suspect]
     Active Substance: INFLIXIMAB
     Dosage: 5MG/KG (THAT IS 0-2-6-10 WEEK)
     Route: 042
     Dates: start: 20220707
  3. INFLIXIMAB [Suspect]
     Active Substance: INFLIXIMAB
     Dosage: 5MG/KG (THAT IS 0-2-6-10 WEEK)
     Route: 042
     Dates: start: 20220808
  4. INFLIXIMAB [Suspect]
     Active Substance: INFLIXIMAB
     Dosage: 5MG/KG (THAT IS 0-2-6-10 WEEK)
     Route: 042
     Dates: end: 20221003
  5. Salofalk [Concomitant]
     Indication: Product used for unknown indication
     Dosage: 3 GRAM 1-0-0
  6. VENTOLIN [Concomitant]
     Active Substance: ALBUTEROL SULFATE
     Indication: Product used for unknown indication
  7. MOMETASONE FUROATE [Concomitant]
     Active Substance: MOMETASONE FUROATE
     Indication: Dermatitis atopic

REACTIONS (6)
  - Diarrhoea haemorrhagic [Recovering/Resolving]
  - Flatulence [Recovering/Resolving]
  - Fatigue [Recovering/Resolving]
  - Drug specific antibody present [Unknown]
  - Drug ineffective [Unknown]
  - Off label use [Unknown]
